FAERS Safety Report 13902250 (Version 1)
Quarter: 2017Q3

REPORT INFORMATION
  Report Type: Spontaneous
  Country: US (occurrence: US)
  Receive Date: 20170824
  Receipt Date: 20170824
  Transmission Date: 20171127
  Serious: Yes (Other)
  Sender: FDA-Public Use
  Company Number: US-ROCHE-1129942

PATIENT
  Sex: Female

DRUGS (10)
  1. HERCEPTIN [Suspect]
     Active Substance: TRASTUZUMAB
     Route: 065
  2. TAXOL [Concomitant]
     Active Substance: PACLITAXEL
     Route: 065
  3. DURAGESIC [Concomitant]
     Active Substance: FENTANYL
  4. VICODIN [Concomitant]
     Active Substance: ACETAMINOPHEN\HYDROCODONE BITARTRATE
  5. HERCEPTIN [Suspect]
     Active Substance: TRASTUZUMAB
     Indication: BREAST CANCER METASTATIC
     Route: 065
     Dates: start: 19990128
  6. AREDIA [Concomitant]
     Active Substance: PAMIDRONATE DISODIUM
  7. ARIMIDEX [Concomitant]
     Active Substance: ANASTROZOLE
  8. TAXOL [Concomitant]
     Active Substance: PACLITAXEL
     Route: 065
     Dates: start: 19990129
  9. NEUPOGEN [Concomitant]
     Active Substance: FILGRASTIM
  10. ANADROL [Concomitant]
     Active Substance: OXYMETHOLONE

REACTIONS (14)
  - Constipation [Unknown]
  - Epistaxis [Unknown]
  - Asthenia [Recovering/Resolving]
  - Leukopenia [Unknown]
  - Nausea [Recovering/Resolving]
  - Rhinorrhoea [Unknown]
  - Oedema peripheral [Unknown]
  - Back pain [Unknown]
  - Oral pain [Unknown]
  - Vulvovaginal mycotic infection [Unknown]
  - Decreased appetite [Recovering/Resolving]
  - Tongue discomfort [Unknown]
  - Erythema [Unknown]
  - Rash erythematous [Unknown]
